FAERS Safety Report 8281124 (Version 2)
Quarter: 2013Q4

REPORT INFORMATION
  Report Type: Report from Study
  Country: ES (occurrence: ES)
  Receive Date: 20111209
  Receipt Date: 20131115
  Transmission Date: 20140711
  Serious: Yes (Hospitalization)
  Sender: FDA-Public Use
  Company Number: ES-BIOGENIDEC-2011BI045421

PATIENT
  Age: 34 Year
  Sex: Male

DRUGS (3)
  1. TYSABRI [Suspect]
     Indication: MULTIPLE SCLEROSIS
     Route: 042
     Dates: start: 20090331
  2. ACETAMINOPHEN [Concomitant]
     Indication: PAIN
     Route: 048
  3. METAMIZOL [Concomitant]
     Indication: PAIN
     Route: 048

REACTIONS (1)
  - Appendicectomy [Recovered/Resolved]
